FAERS Safety Report 20411060 (Version 1)
Quarter: 2022Q1

REPORT INFORMATION
  Report Type: Spontaneous
  Country: US (occurrence: None)
  Receive Date: 20220201
  Receipt Date: 20220201
  Transmission Date: 20220423
  Serious: Yes (Life-Threatening, Other)
  Sender: FDA-Public Use
  Company Number: None

PATIENT
  Sex: Female

DRUGS (1)
  1. BUSPIRONE [Suspect]
     Active Substance: BUSPIRONE HYDROCHLORIDE
     Indication: Anxiety
     Dosage: FREQUENCY : EVERY 12 HOURS;?
     Route: 048

REACTIONS (4)
  - Appetite disorder [None]
  - Hypoglycaemia [None]
  - Near death experience [None]
  - Product label issue [None]

NARRATIVE: CASE EVENT DATE: 20220129
